FAERS Safety Report 13960366 (Version 1)
Quarter: 2017Q3

REPORT INFORMATION
  Report Type: Spontaneous
  Country: US (occurrence: None)
  Receive Date: 20170912
  Receipt Date: 20170912
  Transmission Date: 20171128
  Serious: Yes (Other)
  Sender: FDA-Public Use
  Company Number: None

PATIENT
  Age: 57 Year
  Sex: Female

DRUGS (4)
  1. SEROQUEL [Concomitant]
     Active Substance: QUETIAPINE FUMARATE
  2. CLONAZEPAM. [Concomitant]
     Active Substance: CLONAZEPAM
  3. ABILIFY MAINTENA [Suspect]
     Active Substance: ARIPIPRAZOLE
     Indication: BIPOLAR DISORDER
     Route: 030
     Dates: start: 20170828
  4. BENZTROPINE [Concomitant]
     Active Substance: BENZTROPINE

REACTIONS (1)
  - Vision blurred [None]

NARRATIVE: CASE EVENT DATE: 20170911
